FAERS Safety Report 17813819 (Version 1)
Quarter: 2020Q2

REPORT INFORMATION
  Report Type: Spontaneous
  Country: FR (occurrence: FR)
  Receive Date: 20200521
  Receipt Date: 20200521
  Transmission Date: 20200714
  Serious: Yes (Life-Threatening, Hospitalization)
  Sender: FDA-Public Use
  Company Number: FR-009507513-2005FRA005280

PATIENT
  Age: 59 Year
  Sex: Male
  Weight: 71.8 kg

DRUGS (17)
  1. MOVICOL [Concomitant]
     Active Substance: POLYETHYLENE GLYCOL 3350\POTASSIUM CHLORIDE\SODIUM BICARBONATE\SODIUM CHLORIDE
  2. FLUOXETINE HYDROCHLORIDE. [Concomitant]
     Active Substance: FLUOXETINE HYDROCHLORIDE
     Dosage: UNK
  3. JANUMET [Suspect]
     Active Substance: METFORMIN HYDROCHLORIDE\SITAGLIPTIN PHOSPHATE
     Indication: TYPE 2 DIABETES MELLITUS
     Dosage: 2 DOSAGE FORM, QD
     Route: 048
     Dates: end: 20200115
  4. KARDEGIC [Concomitant]
     Active Substance: ASPIRIN DL-LYSINE
     Dosage: POWDER FOR ORAL SOLUTION IN SINGLE-DOSE SACHET
  5. SODIUM CHLORIDE. [Concomitant]
     Active Substance: SODIUM CHLORIDE
  6. ZOLPIDEM [Concomitant]
     Active Substance: ZOLPIDEM TARTRATE
     Dosage: UNK
  7. HEPARIN [Concomitant]
     Active Substance: HEPARIN SODIUM
     Dosage: UNK
  8. METFORMIN [Concomitant]
     Active Substance: METFORMIN HYDROCHLORIDE
     Dosage: UNK
  9. COTAREG [Suspect]
     Active Substance: HYDROCHLOROTHIAZIDE\VALSARTAN
     Indication: HYPERTENSION
     Dosage: 1 DOSAGE FORM, QD
     Route: 048
     Dates: end: 20200107
  10. OPDIVO [Suspect]
     Active Substance: NIVOLUMAB
     Indication: MALIGNANT MELANOMA STAGE IV
     Dosage: 70 MILLIGRAM, TOTAL, SOLUTION TO DILUTE FOR INFUSION
     Route: 042
     Dates: start: 20191219, end: 20191219
  11. ATORVASTATIN [Concomitant]
     Active Substance: ATORVASTATIN
  12. ACETAMINOPHEN. [Concomitant]
     Active Substance: ACETAMINOPHEN
     Dosage: PARACETAMOL
  13. IOMERON [Suspect]
     Active Substance: IOMEPROL
     Dosage: 100 MILLILITER, TOTAL
     Route: 042
     Dates: start: 20200107, end: 20200107
  14. SKENAN [Concomitant]
     Active Substance: MORPHINE SULFATE
     Dosage: UNK, MICROGRANULES PROLONGED RELEASE AS CAPSULE
  15. ACTISKENAN [Concomitant]
     Active Substance: MORPHINE SULFATE
     Dosage: UNK
  16. YERVOY [Suspect]
     Active Substance: IPILIMUMAB
     Indication: MALIGNANT MELANOMA STAGE IV
     Dosage: 210 MILLIGRAM, TOTAL, 5 MG/ML,SOLUTION TO DILUTE FOR INFUSION
     Route: 042
     Dates: start: 20191219, end: 20191219
  17. BROMAZEPAM [Concomitant]
     Active Substance: BROMAZEPAM
     Dosage: UNK

REACTIONS (2)
  - Anuria [Not Recovered/Not Resolved]
  - Acute kidney injury [Not Recovered/Not Resolved]

NARRATIVE: CASE EVENT DATE: 20200108
